FAERS Safety Report 17229135 (Version 1)
Quarter: 2019Q4

REPORT INFORMATION
  Report Type: Spontaneous
  Country: US (occurrence: US)
  Receive Date: 20191210
  Receipt Date: 20191210
  Transmission Date: 20200122
  Serious: Yes (Other)
  Sender: FDA-Public Use
  Company Number: None

PATIENT
  Sex: Female

DRUGS (15)
  1. HYDROXYZ PAM [Concomitant]
     Active Substance: HYDROXYZINE PAMOATE
  2. ADVIR DISKUS AER [Concomitant]
  3. GABAPENTIN. [Concomitant]
     Active Substance: GABAPENTIN
  4. MYRBETRIOQ [Concomitant]
  5. TALTZ [Suspect]
     Active Substance: IXEKIZUMAB
     Indication: PSORIASIS
     Dosage: ?          OTHER DOSE:1 PEN; Q4WKS?
     Route: 058
     Dates: start: 20170525
  6. AMLODIPINE [Concomitant]
     Active Substance: AMLODIPINE BESYLATE
  7. ARPIPRAZOLE [Concomitant]
     Active Substance: ARIPIPRAZOLE
  8. ATORVASTATIN [Concomitant]
     Active Substance: ATORVASTATIN
  9. VENTOLIN HFA [Concomitant]
     Active Substance: ALBUTEROL SULFATE
  10. AMOXICLLIN [Concomitant]
  11. INCRUSE ELPT [Concomitant]
  12. ALENDRONATE [Concomitant]
     Active Substance: ALENDRONATE SODIUM
  13. DESVENLAFAX [Concomitant]
  14. ELIQUIS [Concomitant]
     Active Substance: APIXABAN
  15. HYDROCO/APAP [Concomitant]
     Active Substance: ACETAMINOPHEN\HYDROCODONE

REACTIONS (1)
  - Cerebrovascular accident [None]
